FAERS Safety Report 9707191 (Version 1)
Quarter: 2013Q4

REPORT INFORMATION
  Report Type: Spontaneous
  Country: US (occurrence: US)
  Receive Date: 20131125
  Receipt Date: 20131125
  Transmission Date: 20140711
  Serious: No
  Sender: FDA-Public Use
  Company Number: US-BAYER-2013-143397

PATIENT
  Age: 77 Year
  Sex: Female
  Weight: 84 kg

DRUGS (7)
  1. ALEVE CAPLET [Suspect]
     Indication: ARTHRITIS
     Dosage: 1 DF, BID
     Route: 048
     Dates: start: 201310
  2. HYDROCODONE [Concomitant]
  3. FEMARA [Concomitant]
  4. LISINOPRIL [Concomitant]
  5. PRAVASTATIN [Concomitant]
  6. ALLOPURINOL [Concomitant]
  7. SERZONE [Concomitant]

REACTIONS (2)
  - Drug ineffective [None]
  - Incorrect drug administration duration [None]
